FAERS Safety Report 6384351-X (Version None)
Quarter: 2009Q3

REPORT INFORMATION
  Report Type: 
  Country: None (occurrence: None)
  Receive Date: 20090929
  Receipt Date: 20090925
  Transmission Date: 20100115
  Serious: Yes (Other)
  Sender: FDA-Public Use
  Company Number: 2009SP025357

PATIENT
  Age: 67 Year
  Sex: Male

DRUGS (10)
  1. TEMODAL [Suspect]
     Indication: MALIGNANT MELANOMA
     Dosage: 280 MG; PO; 140 MG; PO
     Route: 048
     Dates: start: 20090603
  2. TEMODAL [Suspect]
     Indication: METASTASES TO CENTRAL NERVOUS SYSTEM
     Dosage: 280 MG; PO; 140 MG; PO
     Route: 048
     Dates: start: 20090603
  3. AMLODIPIN (CON.) [Concomitant]
  4. SIMVASTATIN (CON.) [Concomitant]
  5. PLAVIX (CON.) [Concomitant]
  6. IMDUR (CON.) [Concomitant]
  7. THYCAPZOL (CON.) [Concomitant]
  8. ACETYLSALICYLIC ACID (CON.) [Concomitant]
  9. SELO-ZOK (CON.) [Concomitant]
  10. ATACAND (CON.) [Concomitant]

REACTIONS (1)
  - BLOOD CREATININE INCREASED [None]
